FAERS Safety Report 10986697 (Version 2)
Quarter: 2015Q2

REPORT INFORMATION
  Report Type: Spontaneous
  Country: JP (occurrence: None)
  Receive Date: 20150402
  Receipt Date: 20150612
  Transmission Date: 20150821
  Serious: Yes (Hospitalization)
  Sender: FDA-Public Use
  Company Number: 2015-000635

PATIENT
  Age: 68 Year
  Sex: Female

DRUGS (6)
  1. FLUNITRAZEPAM (FLUNITRAZEPAM) [Concomitant]
     Active Substance: FLUNITRAZEPAM
  2. TRIHEXIN (TRIHEXYPHENIDYL HYDROCHLORIDE) [Concomitant]
  3. ACTONEL [Suspect]
     Active Substance: RISEDRONATE SODIUM
     Indication: OSTEOPOROSIS
     Route: 048
     Dates: end: 20150202
  4. CALCITONIN (CALCITONIN) [Concomitant]
     Active Substance: CALCITONIN
  5. SERENASE (HALOPERIDOL) [Concomitant]
  6. PALGIN (ETIZOLAM) [Concomitant]

REACTIONS (3)
  - Liver disorder [None]
  - Drug-induced liver injury [None]
  - Autoimmune hepatitis [None]

NARRATIVE: CASE EVENT DATE: 20150202
